FAERS Safety Report 12628484 (Version 1)
Quarter: 2016Q3

REPORT INFORMATION
  Report Type: Spontaneous
  Country: US (occurrence: US)
  Receive Date: 20160808
  Receipt Date: 20160808
  Transmission Date: 20161109
  Serious: No
  Sender: FDA-Public Use
  Company Number: US-JAZZ-2016-US-004231

PATIENT
  Age: 47 Year
  Sex: Female

DRUGS (24)
  1. LEVOTHYROXINE SODIUM. [Concomitant]
     Active Substance: LEVOTHYROXINE SODIUM
  2. BACLOFEN. [Concomitant]
     Active Substance: BACLOFEN
  3. ASPIRIN. [Concomitant]
     Active Substance: ASPIRIN
  4. MEDROXYPROGESTERONE [Concomitant]
     Active Substance: MEDROXYPROGESTERONE
  5. SONATA [Concomitant]
     Active Substance: ZALEPLON
  6. CLONAZEPAM. [Concomitant]
     Active Substance: CLONAZEPAM
  7. PREMPRO [Concomitant]
     Active Substance: ESTROGENS, CONJUGATED\MEDROXYPROGESTERONE ACETATE
  8. XYREM [Suspect]
     Active Substance: SODIUM OXYBATE
     Indication: NARCOLEPSY
     Dosage: 2.25 G, BID
     Route: 048
     Dates: start: 201602, end: 201602
  9. XYREM [Suspect]
     Active Substance: SODIUM OXYBATE
     Indication: CATAPLEXY
     Dosage: 3 G, BID
     Route: 048
     Dates: start: 201602
  10. NASACORT [Concomitant]
     Active Substance: TRIAMCINOLONE ACETONIDE
  11. OMEPRAZOLE. [Concomitant]
     Active Substance: OMEPRAZOLE
  12. FISH OIL [Concomitant]
     Active Substance: FISH OIL
  13. FLONASE [Concomitant]
     Active Substance: FLUTICASONE PROPIONATE
  14. LAMOTRIGINE. [Concomitant]
     Active Substance: LAMOTRIGINE
  15. GABAPENTIN. [Concomitant]
     Active Substance: GABAPENTIN
  16. CYMBALTA [Concomitant]
     Active Substance: DULOXETINE HYDROCHLORIDE
  17. VITAMIN B COMPLEX [Concomitant]
     Active Substance: CYANOCOBALAMIN\DEXPANTHENOL\NIACINAMIDE\PYRIDOXINE HYDROCHLORIDE\RIBOFLAVIN 5^-PHOSPHATE SODIUM\THIAMINE HYDROCHLORIDE\VITAMIN B COMPLEX
  18. ZALEPLON. [Concomitant]
     Active Substance: ZALEPLON
  19. CLONAZEPAM. [Concomitant]
     Active Substance: CLONAZEPAM
  20. LORYNA [Concomitant]
     Active Substance: DROSPIRENONE\ETHINYL ESTRADIOL
  21. NUVIGIL [Concomitant]
     Active Substance: ARMODAFINIL
  22. ZYRTEC [Concomitant]
     Active Substance: CETIRIZINE HYDROCHLORIDE
  23. ESTRADIOL. [Concomitant]
     Active Substance: ESTRADIOL
  24. VITAMIN D [Concomitant]
     Active Substance: CHOLECALCIFEROL

REACTIONS (1)
  - Weight decreased [Unknown]

NARRATIVE: CASE EVENT DATE: 201602
